FAERS Safety Report 6152721-0 (Version None)
Quarter: 2009Q2

REPORT INFORMATION
  Report Type: 
  Country: None (occurrence: None)
  Receive Date: 20090409
  Receipt Date: 20090325
  Transmission Date: 20091009
  Serious: Yes (Death, Hospitalization)
  Sender: FDA-Public Use
  Company Number: 1-17918101

PATIENT
  Age: 17 Year
  Sex: Male
  Weight: 86.1834 kg

DRUGS (4)
  1. SOLODYN [Suspect]
     Indication: ACNE
     Dosage: ONCE DAILY, ORAL
     Route: 048
     Dates: start: 20071201, end: 20080901
  2. TOPICAL FORMULATIONS FOR ACNE [Concomitant]
  3. MULTIPLE UNSPECIFIED ANTIBIOTICS FOR ACNE [Concomitant]
  4. ADVIL [Concomitant]

REACTIONS (10)
  - ASCITES [None]
  - DECREASED APPETITE [None]
  - FLATULENCE [None]
  - MULTI-ORGAN DISORDER [None]
  - OSTEOCHONDROSIS [None]
  - PYREXIA [None]
  - SEPSIS [None]
  - SYNCOPE [None]
  - VOMITING [None]
  - WEIGHT DECREASED [None]
